FAERS Safety Report 24669506 (Version 1)
Quarter: 2024Q4

REPORT INFORMATION
  Report Type: Spontaneous
  Country: US (occurrence: None)
  Receive Date: 20241127
  Receipt Date: 20241127
  Transmission Date: 20250114
  Serious: Yes (Other)
  Sender: Public
  Company Number: None

PATIENT
  Sex: Female

DRUGS (10)
  1. PROLIA [Suspect]
     Active Substance: DENOSUMAB
     Indication: Osteoarthritis
     Dosage: OTHER FREQUENCY : EVERY 6 MONTHS;?
     Route: 058
     Dates: start: 20220408
  2. ASPIRIN [Concomitant]
     Active Substance: ASPIRIN
  3. CALCIUM 600 TAB +D [Concomitant]
  4. EUFLEXXA [Concomitant]
     Active Substance: HYALURONATE SODIUM
  5. LIPITOR [Concomitant]
     Active Substance: ATORVASTATIN CALCIUM
  6. MULTIVITAMIN CHW CHILDREN [Concomitant]
  7. PRESERVISION CAP AREDS [Concomitant]
  8. PROLIA [Concomitant]
     Active Substance: DENOSUMAB
  9. VALSARTAN [Concomitant]
     Active Substance: VALSARTAN
  10. VITAMIN D [Concomitant]
     Active Substance: VITAMIN D NOS

REACTIONS (1)
  - Spinal compression fracture [None]
